FAERS Safety Report 5636768-6 (Version None)
Quarter: 2008Q1

REPORT INFORMATION
  Report Type: 
  Country: None (occurrence: None)
  Receive Date: 20080225
  Receipt Date: 20080211
  Transmission Date: 20080703
  Serious: Yes (Hospitalization, Other)
  Sender: FDA-Public Use
  Company Number: NL-ELI_LILLY_AND_COMPANY-NL200709001138

PATIENT
  Sex: Female

DRUGS (12)
  1. OLANZAPINE [Suspect]
     Indication: PSYCHOTIC DISORDER
     Dosage: 15 MG, UNK
     Dates: start: 19960101, end: 19960101
  2. OLANZAPINE [Suspect]
     Dosage: 15 MG, UNK
     Dates: start: 19970101
  3. PROZAC [Suspect]
     Indication: DEPRESSION
     Dosage: 30 MG, UNK
     Dates: start: 20010101
  4. METFORMIN HCL [Concomitant]
     Indication: DIABETES MELLITUS
     Dosage: 850 MG, 3/D
  5. ATENOLOL [Concomitant]
     Indication: HYPERTENSION
     Dosage: 50 MG, DAILY (1/D)
  6. FUROSEMIDE [Concomitant]
     Indication: FLUID RETENTION
     Dosage: 40 MG, 2/D
  7. BETAHISTIDINE/BETAHISTIDINE DIHYDROCHLORIDE [Concomitant]
     Indication: MENIERE'S DISEASE
     Dosage: 16 MG, 2/D
  8. LOSEC I.V. [Concomitant]
     Indication: GASTRIC DISORDER
  9. ASCAL [Concomitant]
     Dosage: 38 MG, DAILY (1/D)
  10. MAGNESIUM OXIDE [Concomitant]
     Indication: CONSTIPATION
     Dosage: 500 MG, UNK
  11. DOMPERIDONE [Concomitant]
     Indication: STOMACH DISCOMFORT
     Dosage: 30 MG, 3/D
  12. DOMPERIDONE [Concomitant]
     Dosage: 30 MG, 2/D

REACTIONS (9)
  - DIABETES MELLITUS [None]
  - DIZZINESS [None]
  - ERYTHEMA [None]
  - FATIGUE [None]
  - MALAISE [None]
  - OVERWEIGHT [None]
  - PYREXIA [None]
  - SWELLING FACE [None]
  - TACHYCARDIA [None]
